FAERS Safety Report 7233019-6 (Version None)
Quarter: 2011Q1

REPORT INFORMATION
  Report Type: 
  Country: None (occurrence: None)
  Receive Date: 20110119
  Receipt Date: 20110110
  Transmission Date: 20110831
  Serious: Yes (Other)
  Sender: FDA-Public Use
  Company Number: AT-ACTELION-A-CH2010-42624

PATIENT
  Sex: Male
  Weight: 67 kg

DRUGS (10)
  1. TRACLEER [Suspect]
     Dosage: 62.5 MG, QD
     Route: 048
     Dates: start: 20080527
  2. LISINOPRIL [Concomitant]
  3. TRACLEER [Suspect]
     Indication: PULMONARY HYPERTENSION
     Dosage: 62.5 MG, BID
     Route: 048
     Dates: start: 20080101, end: 20081001
  4. LASIX [Concomitant]
  5. ACENOCUMAROL [Concomitant]
  6. URSODIOL [Concomitant]
  7. SPIRIVA [Concomitant]
  8. SERETIDE [Concomitant]
  9. PANTOLOC [Concomitant]
  10. BERODUAL [Concomitant]

REACTIONS (4)
  - HEPATIC CIRRHOSIS [None]
  - HEPATIC STEATOSIS [None]
  - GAMMA-GLUTAMYLTRANSFERASE INCREASED [None]
  - CONCOMITANT DISEASE AGGRAVATED [None]
